FAERS Safety Report 15439285 (Version 1)
Quarter: 2018Q3

REPORT INFORMATION
  Report Type: Spontaneous
  Country: US (occurrence: US)
  Receive Date: 20180924
  Receipt Date: 20180924
  Transmission Date: 20181010
  Serious: No
  Sender: FDA-Public Use
  Company Number: None

PATIENT
  Age: 57 Year
  Sex: Female
  Weight: 58.5 kg

DRUGS (18)
  1. CLARITIN?D NOS [Concomitant]
     Active Substance: LORATADINE\PSEUDOEPHEDRINE SULFATE
  2. METRONIDAZOLE GEL [Concomitant]
     Active Substance: METRONIDAZOLE
  3. ONE?A?DAY VITAMINS WITH MINERALS [Concomitant]
  4. GABAPENTIN. [Concomitant]
     Active Substance: GABAPENTIN
  5. BECLOMETHASONE DIPROPIONATE [Concomitant]
     Active Substance: BECLOMETHASONE DIPROPIONATE
  6. FLUCONAZOLE. [Concomitant]
     Active Substance: FLUCONAZOLE
  7. PROPRANOLOL [Concomitant]
     Active Substance: PROPRANOLOL HYDROCHLORIDE
  8. KETOCONAZOLE CREAM [Concomitant]
     Active Substance: KETOCONAZOLE
  9. BENADRYL [Concomitant]
     Active Substance: DIPHENHYDRAMINE HYDROCHLORIDE
  10. BOTOX [Concomitant]
     Active Substance: ONABOTULINUMTOXINA
  11. CALCIUM CITRATE [Concomitant]
     Active Substance: CALCIUM CITRATE
  12. NEUTROGENA T?GEL SHAMPOO [Concomitant]
  13. FLUOXETINE [Concomitant]
     Active Substance: FLUOXETINE HYDROCHLORIDE
  14. KETOCONAZOLE SHAMPOO [Concomitant]
     Active Substance: KETOCONAZOLE
  15. TERACONAZOLE VAGINAL CREAM [Concomitant]
  16. BALSALAZIDE [Concomitant]
     Active Substance: BALSALAZIDE
  17. AIMOVIG [Concomitant]
     Active Substance: ERENUMAB-AOOE
  18. BUDENOSIDE [Suspect]
     Active Substance: BUDESONIDE
     Indication: CROHN^S DISEASE
     Dosage: ?          QUANTITY:3 CAPSULE(S);?
     Route: 048
     Dates: start: 20180901, end: 20180924

REACTIONS (5)
  - Hot flush [None]
  - Candida infection [None]
  - Drug ineffective [None]
  - Drug effect faster than expected [None]
  - Drug effect variable [None]

NARRATIVE: CASE EVENT DATE: 20180917
